FAERS Safety Report 20930241 (Version 1)
Quarter: 2022Q2

REPORT INFORMATION
  Report Type: Spontaneous
  Country: US (occurrence: US)
  Receive Date: 20220608
  Receipt Date: 20220608
  Transmission Date: 20220721
  Serious: No
  Sender: FDA-Public Use
  Company Number: US-LUPIN PHARMACEUTICALS INC.-2022-08186

PATIENT
  Age: 52 Year
  Sex: Female

DRUGS (4)
  1. LISINOPRIL [Suspect]
     Active Substance: LISINOPRIL
     Indication: Dermal filler reaction
     Dosage: 5 MG
     Route: 065
  2. LEVOTHYROXINE [Concomitant]
     Active Substance: LEVOTHYROXINE
     Indication: Hypothyroidism
     Dosage: 50 MICROGRAM, QD
     Route: 065
  3. BUPROPION [Concomitant]
     Active Substance: BUPROPION
     Indication: Depression
     Dosage: 450 MG, QD
     Route: 065
  4. BUSPIRONE [Concomitant]
     Active Substance: BUSPIRONE HYDROCHLORIDE
     Indication: Anxiety
     Dosage: 15 MG
     Route: 065

REACTIONS (1)
  - Off label use [Unknown]
